FAERS Safety Report 10219162 (Version 1)
Quarter: 2014Q2

REPORT INFORMATION
  Report Type: Spontaneous
  Country: IN (occurrence: IN)
  Receive Date: 20140605
  Receipt Date: 20140605
  Transmission Date: 20141212
  Serious: Yes (Other)
  Sender: FDA-Public Use
  Company Number: IN-ACTAVIS-2014-11684

PATIENT
  Age: 65 Year
  Sex: Male

DRUGS (3)
  1. DICLOFENAC (UNKNOWN) [Suspect]
     Indication: BACK PAIN
     Dosage: UNKNOWN
     Route: 061
  2. DICLOFENAC [Concomitant]
     Indication: BACK PAIN
     Dosage: UNKNOWN
     Route: 048
  3. RANITIDINE [Concomitant]
     Indication: PRODUCT USED FOR UNKNOWN INDICATION
     Dosage: UNKNOWN
     Route: 048

REACTIONS (1)
  - Photosensitivity reaction [Recovered/Resolved]
